FAERS Safety Report 10079067 (Version 1)
Quarter: 2014Q2

REPORT INFORMATION
  Report Type: Spontaneous
  Country: FR (occurrence: FR)
  Receive Date: 20140415
  Receipt Date: 20140415
  Transmission Date: 20141212
  Serious: Yes (Hospitalization)
  Sender: FDA-Public Use
  Company Number: FR-SA-2014SA046136

PATIENT
  Age: 82 Year
  Sex: Female

DRUGS (9)
  1. ZOLPIDEM TARTRATE [Suspect]
     Indication: PRODUCT USED FOR UNKNOWN INDICATION
     Route: 065
     Dates: end: 20140317
  2. VALPROATE SODIUM [Suspect]
     Indication: PRODUCT USED FOR UNKNOWN INDICATION
     Route: 065
  3. RISPERIDONE [Suspect]
     Indication: PRODUCT USED FOR UNKNOWN INDICATION
     Route: 065
  4. SERESTA [Suspect]
     Indication: PRODUCT USED FOR UNKNOWN INDICATION
     Route: 065
  5. DAFALGAN [Concomitant]
     Route: 065
  6. IRBESARTAN [Concomitant]
     Route: 065
  7. KARDEGIC [Concomitant]
     Route: 065
     Dates: end: 20140317
  8. LANTUS [Concomitant]
     Route: 065
  9. TAHOR [Concomitant]
     Route: 065

REACTIONS (2)
  - Fall [Unknown]
  - Cerebral haematoma [Recovered/Resolved]
